FAERS Safety Report 7475264-0 (Version None)
Quarter: 2011Q2

REPORT INFORMATION
  Report Type: 
  Country: None (occurrence: None)
  Receive Date: 20110505
  Receipt Date: 20110222
  Transmission Date: 20111010
  Serious: Yes (Death)
  Sender: FDA-Public Use
  Company Number: SA-ACCORD-008143

PATIENT
  Age: 53 Year
  Sex: Male

DRUGS (2)
  1. IRINOTECAN HCL [Suspect]
     Indication: COLON CANCER METASTATIC
  2. PANITUMAMAB (PANITUMAMAB) [Suspect]
     Indication: COLON CANCER METASTATIC

REACTIONS (4)
  - ACIDOSIS [None]
  - LUNG CONSOLIDATION [None]
  - CARDIAC ARREST [None]
  - BLOOD CALCIUM DECREASED [None]
